FAERS Safety Report 23348196 (Version 2)
Quarter: 2024Q1

REPORT INFORMATION
  Report Type: Spontaneous
  Country: JP (occurrence: JP)
  Receive Date: 20231228
  Receipt Date: 20240117
  Transmission Date: 20240409
  Serious: Yes (Disabling, Other)
  Sender: FDA-Public Use
  Company Number: JP-ONO-2023JP025770

PATIENT
  Age: 55 Year
  Sex: Male

DRUGS (1)
  1. OPDIVO [Suspect]
     Active Substance: NIVOLUMAB
     Indication: Non-small cell lung cancer recurrent
     Dosage: UNK
     Route: 041

REACTIONS (2)
  - Immune-mediated renal disorder [Recovered/Resolved]
  - Immune-mediated hypothyroidism [Recovered/Resolved with Sequelae]
